FAERS Safety Report 8375748-7 (Version None)
Quarter: 2012Q2

REPORT INFORMATION
  Report Type: 
  Country: None (occurrence: None)
  Receive Date: 20120518
  Receipt Date: 20120518
  Transmission Date: 20120825
  Serious: Yes (Hospitalization)
  Sender: FDA-Public Use
  Company Number: None

PATIENT
  Sex: Female
  Weight: 53.33 kg

DRUGS (2)
  1. CARBOPLATIN [Suspect]
     Dosage: 366 MG
  2. TAXOL [Suspect]
     Dosage: 180 MG

REACTIONS (3)
  - GASTROINTESTINAL HAEMORRHAGE [None]
  - HAEMATOCHEZIA [None]
  - ANAEMIA [None]
